FAERS Safety Report 5635735-6 (Version None)
Quarter: 2008Q1

REPORT INFORMATION
  Report Type: 
  Country: None (occurrence: None)
  Receive Date: 20080220
  Receipt Date: 20080205
  Transmission Date: 20080703
  Serious: Yes (Other)
  Sender: FDA-Public Use
  Company Number: 2008AP000463

PATIENT
  Age: 35 Year
  Sex: Female

DRUGS (2)
  1. GABAPENTIN [Suspect]
     Indication: BIPOLAR II DISORDER
     Dosage: 3600 MG
  2. LITHIUM CARBONATE [Concomitant]

REACTIONS (6)
  - ANORGASMIA [None]
  - DEPRESSIVE SYMPTOM [None]
  - GASTROINTESTINAL PAIN [None]
  - HYPERHIDROSIS [None]
  - TREMOR [None]
  - WITHDRAWAL SYNDROME [None]
